FAERS Safety Report 25672302 (Version 1)
Quarter: 2025Q3

REPORT INFORMATION
  Report Type: Report from Study
  Country: UY (occurrence: UY)
  Receive Date: 20250812
  Receipt Date: 20250812
  Transmission Date: 20251021
  Serious: Yes (Hospitalization)
  Sender: BIOGEN
  Company Number: UY-BIOGEN-2025BI01319795

PATIENT
  Age: 0 Year
  Sex: Female

DRUGS (2)
  1. SPINRAZA [Suspect]
     Active Substance: NUSINERSEN
     Indication: Spinal muscular atrophy
     Dosage: STARTING DOSE (FOURTH DOSE)
     Route: 050
     Dates: start: 20250313
  2. VITAMIN D [Concomitant]
     Active Substance: VITAMIN D NOS
     Indication: Product used for unknown indication
     Route: 050

REACTIONS (12)
  - Gastrooesophageal reflux disease [Not Recovered/Not Resolved]
  - Nasogastric output abnormal [Recovered/Resolved]
  - Bacterial test positive [Unknown]
  - Hot flush [Unknown]
  - Gastrointestinal injury [Unknown]
  - White blood cells urine positive [Unknown]
  - Dysuria [Unknown]
  - Dysphagia [Unknown]
  - Drooling [Unknown]
  - Upper gastrointestinal haemorrhage [Unknown]
  - Bladder mass [Unknown]
  - Vomiting [Unknown]

NARRATIVE: CASE EVENT DATE: 20250731
